FAERS Safety Report 14602578 (Version 2)
Quarter: 2018Q1

REPORT INFORMATION
  Report Type: Spontaneous
  Country: DE (occurrence: DE)
  Receive Date: 20180306
  Receipt Date: 20180315
  Transmission Date: 20180509
  Serious: Yes (Other)
  Sender: FDA-Public Use
  Company Number: DE-AMGEN-DEUSP2018028511

PATIENT
  Age: 76 Year
  Sex: Female
  Weight: 60 kg

DRUGS (2)
  1. PROLIA [Suspect]
     Active Substance: DENOSUMAB
     Indication: OSTEOPOROSIS
     Dosage: UNK, Q6MO
     Route: 058
     Dates: start: 2011
  2. EUTHYROX [Concomitant]
     Active Substance: LEVOTHYROXINE SODIUM
     Indication: HYPOTHYROIDISM
     Dosage: 75 MUG, QD
     Dates: start: 20140310

REACTIONS (2)
  - Monoclonal gammopathy [Recovered/Resolved]
  - Immunoglobulins increased [Recovered/Resolved]

NARRATIVE: CASE EVENT DATE: 20180222
